FAERS Safety Report 24399395 (Version 2)
Quarter: 2024Q4

REPORT INFORMATION
  Report Type: Report from Study
  Country: US (occurrence: US)
  Receive Date: 20241004
  Receipt Date: 20241015
  Transmission Date: 20250114
  Serious: Yes (Death)
  Sender: ROCHE
  Company Number: US-ROCHE-10000097620

PATIENT
  Age: 60 Year
  Sex: Female

DRUGS (4)
  1. AVASTIN [Suspect]
     Active Substance: BEVACIZUMAB
     Indication: Cervix carcinoma
     Dosage: INFUSE 1240MG INTRAVENOUSLY DAY 1 EVERY 21 DAY(S) FOR 6 CYCLES
     Route: 042
  2. AVASTIN [Suspect]
     Active Substance: BEVACIZUMAB
     Indication: Metastases to lung
     Dosage: INFUSE 1240MG INTRAVENOUSLY DAY 1 EVERY 21 DAY(S) FOR 6 CYCLES
     Route: 042
  3. AVASTIN [Suspect]
     Active Substance: BEVACIZUMAB
     Indication: Metastases to liver
  4. AVASTIN [Suspect]
     Active Substance: BEVACIZUMAB
     Indication: Cholangiocarcinoma

REACTIONS (1)
  - Death [Fatal]
